FAERS Safety Report 5843821-0 (Version None)
Quarter: 2008Q3

REPORT INFORMATION
  Report Type: 
  Country: None (occurrence: None)
  Receive Date: 20080813
  Receipt Date: 20080731
  Transmission Date: 20090109
  Serious: Yes (Hospitalization)
  Sender: FDA-Public Use
  Company Number: PHHY2008CH16107

PATIENT
  Age: 61 Year
  Sex: Female

DRUGS (13)
  1. AREDIA [Suspect]
     Indication: OSTEOPOROSIS
     Dosage: 30 MG EVERY 3 MONTHS
     Route: 042
     Dates: start: 20010101, end: 20061201
  2. PREDNISONE TAB [Suspect]
     Indication: RENAL TRANSPLANT
     Dosage: UNK
     Dates: start: 19940101
  3. ESOMEPRAZOLE [Suspect]
     Indication: GASTROOESOPHAGEAL REFLUX DISEASE
     Dosage: UNK
  4. CALCIMAGON-D3 [Concomitant]
     Indication: OSTEOPOROSIS
     Dosage: UNK
  5. IMUREK [Concomitant]
     Indication: RENAL TRANSPLANT
     Dosage: UNK
     Dates: start: 19940101
  6. SANDIMMUNE [Concomitant]
     Indication: RENAL TRANSPLANT
     Dosage: UNK
     Dates: start: 19940101
  7. TEMESTA [Concomitant]
     Dosage: UNK
  8. LEXOTANIL [Concomitant]
     Dosage: UNK
  9. DAFALGAN [Concomitant]
     Dosage: UNK
  10. ASPIRIN [Concomitant]
     Dosage: UNK
  11. DIOVAN [Concomitant]
     Indication: HYPERTENSION
     Dosage: UNK
  12. INEGY [Concomitant]
     Indication: HYPERCHOLESTEROLAEMIA
     Dosage: UNK
  13. SYSTEN [Concomitant]
     Indication: MENOPAUSAL DISORDER
     Dosage: UNK

REACTIONS (6)
  - BONE FISSURE [None]
  - FALL [None]
  - FEMUR FRACTURE [None]
  - INTERNAL FIXATION OF FRACTURE [None]
  - LOWER LIMB DEFORMITY [None]
  - X-RAY ABNORMAL [None]
